FAERS Safety Report 8378300-2 (Version None)
Quarter: 2012Q2

REPORT INFORMATION
  Report Type: 
  Country: None (occurrence: None)
  Receive Date: 20120522
  Receipt Date: 20120517
  Transmission Date: 20120825
  Serious: Yes (Death, Hospitalization)
  Sender: FDA-Public Use
  Company Number: TH-PFIZER INC-2012112579

PATIENT
  Age: 71 Year
  Sex: Male

DRUGS (7)
  1. CLOXACILLIN SODIUM [Suspect]
     Indication: ENTEROCOCCUS TEST POSITIVE
     Dosage: 1 G, 4X/DAY
     Route: 042
  2. ASPIRIN [Concomitant]
     Dosage: 300 MG, SINGLE
     Route: 048
  3. MEROPENEM [Concomitant]
     Dosage: UNK
  4. CEFTAZIDIME [Concomitant]
     Indication: SEPSIS
     Dosage: 2 G, 2X/DAY
     Route: 042
  5. FUROSEMIDE [Concomitant]
     Dosage: 20 MG, SINGLE
     Route: 042
  6. VANCOMYCIN HCL [Suspect]
     Dosage: 1 G, 1X/DAY
     Route: 042
  7. PIPERACILLIN AND TAZOBACTAM [Concomitant]
     Dosage: UNK

REACTIONS (2)
  - SEPSIS [None]
  - ACUTE GENERALISED EXANTHEMATOUS PUSTULOSIS [None]
